FAERS Safety Report 15836361 (Version 1)
Quarter: 2019Q1

REPORT INFORMATION
  Report Type: Spontaneous
  Country: US (occurrence: US)
  Receive Date: 20190117
  Receipt Date: 20190117
  Transmission Date: 20190417
  Serious: Yes (Life-Threatening, Other)
  Sender: FDA-Public Use
  Company Number: None

PATIENT
  Sex: Female

DRUGS (1)
  1. GILENYA [Suspect]
     Active Substance: FINGOLIMOD HYDROCHLORIDE
     Indication: MULTIPLE SCLEROSIS
     Dosage: ?          QUANTITY:1 CAPSULE(S);?
     Route: 048
     Dates: start: 20180613, end: 20181213

REACTIONS (7)
  - Fall [None]
  - Cognitive disorder [None]
  - Multiple sclerosis relapse [None]
  - Cardiac disorder [None]
  - Vertigo [None]
  - Abnormal behaviour [None]
  - Anxiety [None]

NARRATIVE: CASE EVENT DATE: 20180801
